FAERS Safety Report 5087935-4 (Version None)
Quarter: 2006Q3

REPORT INFORMATION
  Report Type: 
  Country: None (occurrence: None)
  Receive Date: 20060822
  Receipt Date: 20060822
  Transmission Date: 20061208
  Serious: Yes (Hospitalization)
  Sender: FDA-Public Use
  Company Number: None

PATIENT
  Age: 72 Year
  Sex: Male
  Weight: 68 kg

DRUGS (2)
  1. OXALIPLATIN [Suspect]
     Dosage: 130 MG DAY 1, 8 Q 21 DAYS IV
     Route: 042
     Dates: start: 20060808, end: 20060818
  2. CAPECITABINE [Suspect]
     Dosage: 3600 MG QD PO
     Route: 048
     Dates: start: 20060808, end: 20060818

REACTIONS (5)
  - DEHYDRATION [None]
  - DIARRHOEA [None]
  - NAUSEA [None]
  - RENAL FAILURE [None]
  - VOMITING [None]
